FAERS Safety Report 4635423-9 (Version None)
Quarter: 2005Q2

REPORT INFORMATION
  Report Type: 
  Country: None (occurrence: None)
  Receive Date: 20050413
  Receipt Date: 20050329
  Transmission Date: 20051028
  Serious: Yes (Other)
  Sender: FDA-Public Use
  Company Number: 2005BI003287

PATIENT
  Age: 47 Year
  Sex: Male

DRUGS (4)
  1. AVONEX [Suspect]
     Indication: MULTIPLE SCLEROSIS
     Dosage: 30 UG; QW; IM
     Route: 030
  2. NATALIZUMAB [Suspect]
     Indication: MULTIPLE SCLEROSIS
     Dosage: 300 MG; QM; IV
     Route: 042
     Dates: start: 20050104, end: 20050203
  3. METHOTREXATE [Concomitant]
  4. FOLATE [Concomitant]

REACTIONS (3)
  - ANAPHYLACTIC REACTION [None]
  - HYPERSENSITIVITY [None]
  - INFUSION SITE REACTION [None]
